FAERS Safety Report 8621583-1 (Version None)
Quarter: 2012Q3

REPORT INFORMATION
  Report Type: 
  Country: None (occurrence: None)
  Receive Date: 20120820
  Receipt Date: 20120820
  Transmission Date: 20120928
  Serious: Yes (Life-Threatening)
  Sender: FDA-Public Use
  Company Number: None

PATIENT
  Age: 62 Year
  Sex: Female
  Weight: 86.1834 kg

DRUGS (1)
  1. LEVOFLOXACIN [Suspect]
     Indication: RESPIRATORY TRACT INFECTION VIRAL
     Dosage: 1 1/2 TABLETS FOR TEN DAYS
     Dates: start: 20120502, end: 20120505

REACTIONS (12)
  - PANIC ATTACK [None]
  - CONFUSIONAL STATE [None]
  - GAIT DISTURBANCE [None]
  - DIZZINESS [None]
  - PARAESTHESIA [None]
  - INSOMNIA [None]
  - ABDOMINAL PAIN UPPER [None]
  - MUSCULAR WEAKNESS [None]
  - ANXIETY [None]
  - NAUSEA [None]
  - HEART RATE IRREGULAR [None]
  - DEPRESSION [None]
